FAERS Safety Report 4394220-2 (Version None)
Quarter: 2004Q3

REPORT INFORMATION
  Report Type: 
  Country: None (occurrence: None)
  Receive Date: 20040712
  Receipt Date: 20040705
  Transmission Date: 20050211
  Serious: Yes (Death, Life-Threatening)
  Sender: FDA-Public Use
  Company Number: PHBS2004NL08891

PATIENT
  Age: 80 Year
  Sex: Female

DRUGS (4)
  1. EXELON [Suspect]
     Dosage: 1.5 MG, QD
     Route: 048
     Dates: start: 20040304
  2. EXELON [Suspect]
     Dosage: 3 MG, BID
     Route: 048
     Dates: start: 20040420
  3. CARBIDOPA AND LEVODOPA [Concomitant]
     Route: 065
  4. OXAZEPAM [Concomitant]
     Dosage: UNK, UNK
     Route: 065

REACTIONS (1)
  - WEIGHT DECREASED [None]
